FAERS Safety Report 18403245 (Version 2)
Quarter: 2020Q4

REPORT INFORMATION
  Report Type: Other
  Country: GB (occurrence: GB)
  Receive Date: 20201019
  Receipt Date: 20201101
  Transmission Date: 20210114
  Serious: Yes (Other)
  Sender: FDA-Public Use
  Company Number: GB-ROCHE-2698012

PATIENT
  Sex: Female

DRUGS (3)
  1. ROACTEMRA [Suspect]
     Active Substance: TOCILIZUMAB
     Indication: RHEUMATOID ARTHRITIS
     Route: 058
     Dates: start: 2019
  2. ATORVASTATIN [Concomitant]
     Active Substance: ATORVASTATIN
  3. PARACETAMOL [Concomitant]
     Active Substance: ACETAMINOPHEN

REACTIONS (2)
  - Kidney infection [Unknown]
  - Urinary tract infection [Unknown]
